FAERS Safety Report 6334705-2 (Version None)
Quarter: 2009Q3

REPORT INFORMATION
  Report Type: 
  Country: None (occurrence: None)
  Receive Date: 20090831
  Receipt Date: 20090818
  Transmission Date: 20100115
  Serious: Yes (Death, Hospitalization, Other)
  Sender: FDA-Public Use
  Company Number: US-TYCO HEALTHCARE/MALLINCKRODT-T200900977

PATIENT
  Sex: Male
  Weight: 84.354 kg

DRUGS (14)
  1. OPTIMARK [Suspect]
     Indication: NUCLEAR MAGNETIC RESONANCE IMAGING ABDOMINAL
     Dosage: 15 ML, SINGLE
     Dates: start: 20050901, end: 20050901
  2. OPTIMARK [Suspect]
     Dosage: 30 ML, SINGLE
     Dates: start: 20060323, end: 20060323
  3. MAGNEVIST [Suspect]
     Indication: NUCLEAR MAGNETIC RESONANCE IMAGING
     Dosage: 20 ML, SINGLE
     Dates: start: 19990818, end: 19990818
  4. MAGNEVIST [Suspect]
     Indication: NUCLEAR MAGNETIC RESONANCE IMAGING BRAIN
     Dosage: UNK
     Dates: start: 20051206, end: 20051206
  5. MAGNEVIST [Suspect]
     Dosage: UNK
     Dates: start: 20060516, end: 20060516
  6. LANTUS [Concomitant]
     Dosage: 28 UNITS IN AM
  7. PHOSLO [Concomitant]
     Dosage: 2 G, TID
  8. REGLAN [Concomitant]
     Dosage: 5 MG AC
  9. ACIPHEX [Concomitant]
     Dosage: 20 MG, QD
  10. HUMALOG [Concomitant]
     Dosage: 11 UNITS, AC
  11. NEPHROCAPS [Concomitant]
     Dosage: UNK
  12. MINOXIDIL [Concomitant]
     Dosage: 0.5 MG, PRN
  13. HEMOCYTE [Concomitant]
     Dosage: UNK
  14. IMDUR [Concomitant]
     Dosage: 30 MG, QD

REACTIONS (41)
  - ABDOMINAL PAIN UPPER [None]
  - ARTERIOVENOUS GRAFT SITE INFECTION [None]
  - ATRIAL FIBRILLATION [None]
  - ATRIOVENTRICULAR BLOCK FIRST DEGREE [None]
  - BLOOD GLUCOSE FLUCTUATION [None]
  - CARCINOID TUMOUR [None]
  - CATHETER RELATED INFECTION [None]
  - CELLULITIS [None]
  - DEPRESSED LEVEL OF CONSCIOUSNESS [None]
  - DIABETIC NEUROPATHY [None]
  - DIARRHOEA [None]
  - DRUG PRESCRIBING ERROR [None]
  - DYSPNOEA [None]
  - GASTRIC DISORDER [None]
  - GASTROINTESTINAL TELANGIECTASIA [None]
  - GASTROOESOPHAGEAL REFLUX DISEASE [None]
  - HAEMORRHOIDS [None]
  - HIATUS HERNIA [None]
  - HYPERPARATHYROIDISM SECONDARY [None]
  - HYPOGLYCAEMIA [None]
  - ICHTHYOSIS [None]
  - IMPAIRED GASTRIC EMPTYING [None]
  - MOBILITY DECREASED [None]
  - NECROSIS [None]
  - NEPHROGENIC SYSTEMIC FIBROSIS [None]
  - NEUROPATHIC ARTHROPATHY [None]
  - OFF LABEL USE [None]
  - PORTAL HYPERTENSION [None]
  - PROCEDURAL PAIN [None]
  - PSEUDOMONAS INFECTION [None]
  - PULMONARY EMBOLISM [None]
  - RENAL ATROPHY [None]
  - RENAL CYST [None]
  - RESPIRATORY ARREST [None]
  - RESPIRATORY FAILURE [None]
  - SKIN ULCER [None]
  - SPLENOMEGALY [None]
  - VENOUS STENOSIS [None]
  - VISION BLURRED [None]
  - VOMITING [None]
  - XEROSIS [None]
